FAERS Safety Report 6499174-0 (Version None)
Quarter: 2009Q4

REPORT INFORMATION
  Report Type: 
  Country: None (occurrence: None)
  Receive Date: 20091215
  Receipt Date: 20091208
  Transmission Date: 20100525
  Serious: Yes (Hospitalization)
  Sender: FDA-Public Use
  Company Number: US-ELI_LILLY_AND_COMPANY-US200912002166

PATIENT
  Sex: Female

DRUGS (4)
  1. HUMALOG [Suspect]
     Indication: DIABETES MELLITUS
     Dosage: 15 U, 3/D
     Dates: start: 20040101
  2. HUMALOG [Suspect]
     Dosage: 15 U, 3/D
  3. HUMALOG [Suspect]
     Dosage: 10 U, 3/D
     Dates: start: 20091101
  4. LANTUS [Concomitant]
     Dosage: 35 U, EACH EVENING

REACTIONS (6)
  - DIABETIC NEUROPATHY [None]
  - INTENTIONAL DRUG MISUSE [None]
  - MALAISE [None]
  - PANCREATIC NEOPLASM [None]
  - PULMONARY EMBOLISM [None]
  - THROMBOSIS [None]
